FAERS Safety Report 16471103 (Version 1)
Quarter: 2019Q2

REPORT INFORMATION
  Report Type: Report from Study
  Country: US (occurrence: US)
  Receive Date: 20190624
  Receipt Date: 20190624
  Transmission Date: 20190711
  Serious: Yes (Hospitalization)
  Sender: FDA-Public Use
  Company Number: US-TAKEDA-2019TUS013216

PATIENT
  Age: 59 Year
  Sex: Male

DRUGS (3)
  1. PONATINIB [Suspect]
     Active Substance: PONATINIB
     Indication: ACUTE LYMPHOCYTIC LEUKAEMIA
     Dosage: 45 MILLIGRAM, QD
     Route: 048
     Dates: start: 201901
  2. PONATINIB [Interacting]
     Active Substance: PONATINIB
     Dosage: 30 MILLIGRAM, QD
     Route: 048
     Dates: start: 20190222
  3. VORICONAZOLE. [Interacting]
     Active Substance: VORICONAZOLE
     Indication: PRODUCT USED FOR UNKNOWN INDICATION
     Dosage: UNK
     Route: 065

REACTIONS (8)
  - Fungal infection [Recovered/Resolved]
  - Rash [Unknown]
  - Neutropenia [Unknown]
  - Blood lactate dehydrogenase increased [Unknown]
  - Serum ferritin increased [Unknown]
  - Hallucination [Recovered/Resolved]
  - Platelet count decreased [Unknown]
  - Muscular weakness [Unknown]

NARRATIVE: CASE EVENT DATE: 201904
